FAERS Safety Report 19573126 (Version 2)
Quarter: 2021Q3

REPORT INFORMATION
  Report Type: Spontaneous
  Country: JP (occurrence: JP)
  Receive Date: 20210716
  Receipt Date: 20210818
  Transmission Date: 20211014
  Serious: Yes (Hospitalization, Other)
  Sender: FDA-Public Use
  Company Number: JP-SA-2021SA234995

PATIENT
  Sex: Female
  Weight: 3 kg

DRUGS (10)
  1. DEPAS [DICLOFENAC;DICYCLOVERINE HYDROCHLORIDE] [Concomitant]
     Dosage: UNK
  2. QUETIAPINE FUMARATE. [Suspect]
     Active Substance: QUETIAPINE FUMARATE
     Dosage: UNK
     Route: 064
  3. METOCLOPRAMIDE. [Concomitant]
     Active Substance: METOCLOPRAMIDE
     Dosage: UNK
  4. BIPERIDEN HYDROCHLORIDE [Concomitant]
     Active Substance: BIPERIDEN HYDROCHLORIDE
     Dosage: UNK
  5. LENDORMIN [Concomitant]
     Active Substance: BROTIZOLAM
     Dosage: UNK
  6. ZOLPIDEM TARTRATE. [Suspect]
     Active Substance: ZOLPIDEM TARTRATE
     Dosage: 5 MG, QD
     Route: 064
  7. RISPERIDONE. [Suspect]
     Active Substance: RISPERIDONE
     Route: 064
  8. DIAZEPAM. [Suspect]
     Active Substance: DIAZEPAM
     Dosage: UNK
  9. REBAMIPIDE [Concomitant]
     Active Substance: REBAMIPIDE
     Dosage: UNK
  10. RISPERDAL [Concomitant]
     Active Substance: RISPERIDONE
     Dosage: UNK

REACTIONS (3)
  - Foetal exposure during pregnancy [Recovered/Resolved]
  - Vomiting [Recovered/Resolved]
  - Meconium ileus [Recovered/Resolved]
